FAERS Safety Report 8548722-5 (Version None)
Quarter: 2012Q3

REPORT INFORMATION
  Report Type: 
  Country: None (occurrence: None)
  Receive Date: 20120730
  Receipt Date: 20120723
  Transmission Date: 20120928
  Serious: Yes (Hospitalization)
  Sender: FDA-Public Use
  Company Number: PHHY2012FR064360

PATIENT
  Sex: Female

DRUGS (10)
  1. COUMADIN [Concomitant]
  2. ESCITALOPRAM [Concomitant]
  3. FORTIMEL [Concomitant]
  4. CALCIUM CARBONATE [Concomitant]
  5. ARICEPT [Concomitant]
  6. MEMANTINE HYDROCHLORIDE [Concomitant]
  7. FOSAMAX [Concomitant]
     Indication: OSTEOPOROSIS
     Dosage: 1 DF WEEKLY
     Route: 048
  8. RABEPRAZOLE SODIUM [Concomitant]
  9. VALSARTAN  AND HYDROCHLOROTHIAZIDE [Suspect]
     Indication: HYPERTENSION
     Dosage: 1 DF (80 MG VAL/ 12.5 MG AMLO), QD
     Route: 048
     Dates: end: 20110105
  10. EQUANIL [Concomitant]

REACTIONS (8)
  - HYPOPHAGIA [None]
  - BLOOD CREATININE INCREASED [None]
  - RENAL FAILURE ACUTE [None]
  - BLOOD UREA INCREASED [None]
  - HYPERNATRAEMIA [None]
  - LEUKOCYTOSIS [None]
  - SKIN DISORDER [None]
  - ESCHERICHIA TEST POSITIVE [None]
